FAERS Safety Report 25218223 (Version 2)
Quarter: 2025Q4

REPORT INFORMATION
  Report Type: Spontaneous
  Country: US (occurrence: US)
  Receive Date: 20250421
  Receipt Date: 20251111
  Transmission Date: 20260118
  Serious: No
  Sender: ROCHE
  Company Number: US-ROCHE-10000262232

PATIENT
  Age: 42 Year
  Sex: Male

DRUGS (4)
  1. HEMLIBRA [Suspect]
     Active Substance: EMICIZUMAB-KXWH
     Indication: Factor VIII deficiency
     Dosage: STRENGTH- 105MG/0.7ML
     Route: 058
     Dates: start: 202501
  2. HEMLIBRA [Suspect]
     Active Substance: EMICIZUMAB-KXWH
     Dosage: STRENGTH- 150MG/ML
     Route: 058
     Dates: start: 202501
  3. HEMLIBRA [Suspect]
     Active Substance: EMICIZUMAB-KXWH
     Dosage: STRENGTH: 105MG/.7ML AND 150MG/ML
     Route: 058
     Dates: start: 202501
  4. ADVATE INJECTION [Concomitant]

REACTIONS (2)
  - Haemorrhage [Unknown]
  - Haemorrhage [Unknown]

NARRATIVE: CASE EVENT DATE: 20250328
